FAERS Safety Report 13542236 (Version 1)
Quarter: 2017Q2

REPORT INFORMATION
  Report Type: Spontaneous
  Country: US (occurrence: US)
  Receive Date: 20170512
  Receipt Date: 20170512
  Transmission Date: 20170830
  Serious: Yes (Other)
  Sender: FDA-Public Use
  Company Number: US-ROCHE-796783

PATIENT
  Age: 85 Year
  Sex: Male

DRUGS (1)
  1. AVASTIN [Suspect]
     Active Substance: BEVACIZUMAB
     Indication: DRY AGE-RELATED MACULAR DEGENERATION
     Route: 050

REACTIONS (1)
  - Retinal pigment epithelial tear [Unknown]
